FAERS Safety Report 21667428 (Version 2)
Quarter: 2023Q1

REPORT INFORMATION
  Report Type: Spontaneous
  Country: JP (occurrence: JP)
  Receive Date: 20221201
  Receipt Date: 20230213
  Transmission Date: 20230418
  Serious: Yes (Hospitalization)
  Sender: FDA-Public Use
  Company Number: JP-Eisai-202211327_LEN-EC_P_1

PATIENT
  Sex: Female

DRUGS (2)
  1. LENVIMA [Suspect]
     Active Substance: LENVATINIB
     Indication: Uterine cancer
     Route: 048
     Dates: start: 20220921, end: 202211
  2. KEYTRUDA [Suspect]
     Active Substance: PEMBROLIZUMAB
     Indication: Uterine cancer
     Route: 041
     Dates: start: 20220921, end: 202210

REACTIONS (3)
  - Thyroiditis [Recovering/Resolving]
  - Cardiac failure [Recovered/Resolved]
  - Muscle spasms [Recovered/Resolved]

NARRATIVE: CASE EVENT DATE: 20221102
